FAERS Safety Report 16125645 (Version 1)
Quarter: 2019Q1

REPORT INFORMATION
  Report Type: Spontaneous
  Country: US (occurrence: US)
  Receive Date: 20190328
  Receipt Date: 20190328
  Transmission Date: 20190418
  Serious: No
  Sender: FDA-Public Use
  Company Number: US-ELI_LILLY_AND_COMPANY-US201903012929

PATIENT
  Sex: Female

DRUGS (9)
  1. BASAGLAR [Suspect]
     Active Substance: INSULIN GLARGINE
     Indication: TYPE 2 DIABETES MELLITUS
     Dosage: 10 IU, EACH MORNING
     Route: 058
     Dates: start: 201902
  2. BASAGLAR [Suspect]
     Active Substance: INSULIN GLARGINE
     Dosage: 10 IU, EACH MORNING
     Route: 058
     Dates: start: 201902
  3. BASAGLAR [Suspect]
     Active Substance: INSULIN GLARGINE
     Dosage: 45 IU, EACH EVENING
     Route: 058
     Dates: start: 201902
  4. BASAGLAR [Suspect]
     Active Substance: INSULIN GLARGINE
     Dosage: 10 IU, EACH MORNING
     Route: 058
     Dates: start: 201902
  5. BASAGLAR [Suspect]
     Active Substance: INSULIN GLARGINE
     Dosage: 45 IU, EACH EVENING
     Route: 058
     Dates: start: 201902
  6. BASAGLAR [Suspect]
     Active Substance: INSULIN GLARGINE
     Dosage: 10 IU, EACH MORNING
     Route: 058
     Dates: start: 201902
  7. GLIPIZIDE. [Concomitant]
     Active Substance: GLIPIZIDE
     Indication: TYPE 2 DIABETES MELLITUS
  8. BASAGLAR [Suspect]
     Active Substance: INSULIN GLARGINE
     Dosage: 45 IU, EACH EVENING
     Route: 058
     Dates: start: 201902
  9. BASAGLAR [Suspect]
     Active Substance: INSULIN GLARGINE
     Dosage: 45 IU, EACH EVENING
     Route: 058
     Dates: start: 201902

REACTIONS (2)
  - Injury associated with device [Unknown]
  - Inappropriate schedule of product administration [Unknown]
